FAERS Safety Report 7055403-6 (Version None)
Quarter: 2010Q4

REPORT INFORMATION
  Report Type: 
  Country: None (occurrence: None)
  Receive Date: 20101019
  Receipt Date: 20101019
  Transmission Date: 20110411
  Serious: Yes (Hospitalization)
  Sender: FDA-Public Use
  Company Number: None

PATIENT
  Age: 83 Year
  Sex: Male
  Weight: 150 kg

DRUGS (9)
  1. CEFAZOLIN [Suspect]
     Indication: ARTHRITIS BACTERIAL
     Dosage: 2 GRAMS IV Q8H
     Route: 042
     Dates: start: 20100705, end: 20100712
  2. ACETAMINOPHEN [Concomitant]
  3. ALLOPURINOL [Concomitant]
  4. ASPIRIN [Concomitant]
  5. COLCHICINE [Concomitant]
  6. ROSUVASTATIN [Concomitant]
  7. ESCITALOPRAM [Concomitant]
  8. OMEPRAZOLE [Concomitant]
  9. TORSEMIDE [Concomitant]

REACTIONS (1)
  - ACUTE GENERALISED EXANTHEMATOUS PUSTULOSIS [None]
